FAERS Safety Report 4815736-8 (Version None)
Quarter: 2005Q4

REPORT INFORMATION
  Report Type: 
  Country: None (occurrence: None)
  Receive Date: 20051031
  Receipt Date: 20051018
  Transmission Date: 20060501
  Serious: Yes (Other)
  Sender: FDA-Public Use
  Company Number: NL-GLAXOSMITHKLINE-B0397699A

PATIENT
  Sex: Female

DRUGS (1)
  1. DERMOVATE [Suspect]
     Indication: DRUG USE FOR UNKNOWN INDICATION

REACTIONS (4)
  - DRY SKIN [None]
  - ERYTHEMA [None]
  - SKIN ATROPHY [None]
  - SKIN BURNING SENSATION [None]
